FAERS Safety Report 8585652-7 (Version None)
Quarter: 2012Q3

REPORT INFORMATION
  Report Type: 
  Country: None (occurrence: None)
  Receive Date: 20120802
  Receipt Date: 20120802
  Transmission Date: 20120928
  Serious: Yes (Death, Hospitalization)
  Sender: FDA-Public Use
  Company Number: None

PATIENT
  Sex: Female
  Weight: 49.1 kg

DRUGS (1)
  1. REMICADE [Suspect]
     Indication: RHEUMATOID ARTHRITIS
     Dosage: 400MG EVERY 4 WKS IV
     Route: 042
     Dates: start: 20030226, end: 20120628

REACTIONS (5)
  - MUSCULAR WEAKNESS [None]
  - GENERAL PHYSICAL HEALTH DETERIORATION [None]
  - CHEST PAIN [None]
  - ASTHENIA [None]
  - UROSEPSIS [None]
